FAERS Safety Report 4684321-3 (Version None)
Quarter: 2005Q2

REPORT INFORMATION
  Report Type: 
  Country: None (occurrence: None)
  Receive Date: 20050607
  Receipt Date: 20050110
  Transmission Date: 20051028
  Serious: Yes (Hospitalization)
  Sender: FDA-Public Use
  Company Number: 2005CG00082

PATIENT
  Age: 87 Year
  Sex: Male

DRUGS (6)
  1. MOPRAL [Suspect]
     Route: 048
     Dates: start: 20030101
  2. EFFERALGAN [Suspect]
     Route: 048
     Dates: start: 20030101
  3. HEMIDAONIL [Suspect]
     Route: 048
     Dates: start: 20000101
  4. RIMACTANE [Suspect]
     Route: 048
     Dates: start: 20041030
  5. CLAMOXYL [Suspect]
     Route: 048
     Dates: start: 20041030
  6. OMIX [Suspect]
     Route: 048
     Dates: start: 19990101

REACTIONS (5)
  - BETA HAEMOLYTIC STREPTOCOCCAL INFECTION [None]
  - HEPATITIS [None]
  - HEPATITIS CHOLESTATIC [None]
  - IMPLANT SITE INFECTION [None]
  - LYMPHOPENIA [None]
